FAERS Safety Report 10420273 (Version 1)
Quarter: 2014Q3

REPORT INFORMATION
  Report Type: Spontaneous
  Country: US (occurrence: None)
  Receive Date: 20140701
  Receipt Date: 20140701
  Transmission Date: 20150326
  Serious: No
  Sender: FDA-Public Use
  Company Number: 1000067176

PATIENT
  Age: 67 Year
  Sex: Female

DRUGS (8)
  1. FOLGARD (CHOLECALCIFEROL, RIBOFLAVIN, PYRIDOXINE, FOLIC ACID, CYANOCOBALAMIN, CALCIUM, PHOSPHORUS) [Concomitant]
  2. CITALOPRAM (CITALOPRAM HYDROBROMIDE) [Concomitant]
  3. PREDNISONE. [Concomitant]
     Active Substance: PREDNISONE
  4. VITAMIN B 12 (VITRAMIN B NOS) [Concomitant]
  5. LINZESS [Suspect]
     Active Substance: LINACLOTIDE
     Indication: ABDOMINAL PAIN
     Dosage: 1 IN 1 D
     Route: 048
     Dates: start: 20140504, end: 20140507
  6. LOVAZA [Concomitant]
     Active Substance: OMEGA-3-ACID ETHYL ESTERS
  7. HYDROCODONE [Concomitant]
     Active Substance: HYDROCODONE
  8. LEVOCETIRIZINE [Concomitant]
     Active Substance: LEVOCETIRIZINE

REACTIONS (2)
  - Diarrhoea [None]
  - Off label use [None]

NARRATIVE: CASE EVENT DATE: 20140504
